FAERS Safety Report 6410036-7 (Version None)
Quarter: 2009Q4

REPORT INFORMATION
  Report Type: 
  Country: None (occurrence: None)
  Receive Date: 20091022
  Receipt Date: 20090910
  Transmission Date: 20100525
  Serious: No
  Sender: FDA-Public Use
  Company Number: US-BAYER-200933157NA

PATIENT
  Age: 23 Year
  Sex: Female
  Weight: 68 kg

DRUGS (5)
  1. YAZ [Suspect]
     Indication: CONTRACEPTION
     Route: 048
     Dates: start: 20090801
  2. LYRICA [Concomitant]
     Indication: FIBROMYALGIA
  3. PREDNISONE [Concomitant]
     Indication: UPPER RESPIRATORY TRACT INFECTION
  4. ERYTHROMYCIN [Concomitant]
     Indication: UPPER RESPIRATORY TRACT INFECTION
  5. ALBUTEROL [Concomitant]
     Indication: UPPER RESPIRATORY TRACT INFECTION

REACTIONS (1)
  - MENSTRUATION DELAYED [None]
